FAERS Safety Report 9981656 (Version 1)
Quarter: 2014Q1

REPORT INFORMATION
  Report Type: Spontaneous
  Country: US (occurrence: None)
  Receive Date: 20140306
  Receipt Date: 20140306
  Transmission Date: 20141002
  Serious: Yes (Other)
  Sender: FDA-Public Use
  Company Number: None

PATIENT
  Sex: Female

DRUGS (3)
  1. CRIXIVAN [Suspect]
     Indication: HIV INFECTION
     Route: 048
     Dates: start: 19971201, end: 20030101
  2. SUSTIVA [Suspect]
  3. ZOLOFT [Concomitant]

REACTIONS (4)
  - Depression [None]
  - Viral load increased [None]
  - Vomiting [None]
  - Rash [None]
